FAERS Safety Report 10141707 (Version 1)
Quarter: 2014Q2

REPORT INFORMATION
  Report Type: Other
  Country: GB (occurrence: GB)
  Receive Date: 20140429
  Receipt Date: 20140429
  Transmission Date: 20141212
  Serious: Yes (Life-Threatening, Hospitalization)
  Sender: FDA-Public Use
  Company Number: GB-TARO PHARMACEUTICALS U.S.A., INC-2014SUN00913

PATIENT
  Age: 76 Year
  Sex: Male
  Weight: 55.1 kg

DRUGS (18)
  1. WARFARIN [Suspect]
     Indication: PRODUCT USED FOR UNKNOWN INDICATION
     Dosage: AS PRESCRIBED
     Route: 065
  2. ENALAPRIL [Suspect]
     Indication: CARDIAC FAILURE CHRONIC
     Dosage: DOUBLE BLIND
     Route: 048
     Dates: start: 20120119, end: 20130117
  3. ENALAPRIL [Suspect]
     Dosage: DOUBLE BLIND
     Route: 048
     Dates: end: 20130313
  4. LCZ696 [Suspect]
     Indication: CARDIAC FAILURE CHRONIC
     Dosage: DOUBLE BLIND
     Route: 048
     Dates: start: 20120119, end: 20130117
  5. LCZ696 [Suspect]
     Dosage: DOUBLE BLIND
     Route: 048
     Dates: end: 20130313
  6. GLICLAZIDE [Suspect]
     Indication: PRODUCT USED FOR UNKNOWN INDICATION
     Dosage: UNK
     Route: 065
  7. LCZ696 [Suspect]
     Indication: CARDIAC FAILURE CHRONIC
     Dosage: UNK
     Route: 048
     Dates: start: 20120113, end: 20120117
  8. LCZ696 [Suspect]
     Dosage: 200 MG, UNK
     Route: 048
     Dates: start: 20111207, end: 20120110
  9. ATORVASTATIN [Concomitant]
     Indication: MYOCARDIAL ISCHAEMIA
     Dosage: 80 MG, UNK
  10. BISOPROLOL [Concomitant]
     Dosage: 5 MG, UNK
  11. BUMETANIDE [Concomitant]
     Dosage: 2 MG, UNK
  12. DALTEPARIN [Concomitant]
     Dosage: 12.5000
  13. FUROSEMIDE [Concomitant]
     Dosage: 40 MG, UNK
  14. ISMN [Concomitant]
     Dosage: 40 MG, UNK
  15. IVABRADINE [Concomitant]
     Indication: ANGINA PECTORIS
     Dosage: 5 MG, QD
     Route: 048
     Dates: start: 20120606
  16. LEVOTHYROXINE [Concomitant]
     Dosage: 100 MG, UNK
  17. RAMIPRIL [Concomitant]
     Dosage: 2.5 MG, UNK
  18. SPIRONOLACTONE [Concomitant]
     Dosage: 50 MG, UNK

REACTIONS (5)
  - Haemoglobin decreased [Recovered/Resolved]
  - Acute myocardial infarction [Recovered/Resolved]
  - Hypoglycaemia [Recovered/Resolved]
  - Cardiac failure [Recovering/Resolving]
  - Myocardial infarction [Recovered/Resolved]
